FAERS Safety Report 9187461 (Version 1)
Quarter: 2013Q1

REPORT INFORMATION
  Report Type: Spontaneous
  Country: US (occurrence: US)
  Receive Date: 20130325
  Receipt Date: 20130325
  Transmission Date: 20140127
  Serious: Yes (Other)
  Sender: FDA-Public Use
  Company Number: PHEH2013US006731

PATIENT
  Sex: Female

DRUGS (3)
  1. DIOVAN [Suspect]
     Indication: PROPHYLAXIS
     Dosage: 320 MG, UNK
  2. LEVEMIR [Concomitant]
     Dosage: UNK UKN, UNK
  3. GLIPIZIDE [Concomitant]

REACTIONS (1)
  - Diabetes mellitus inadequate control [Unknown]
